FAERS Safety Report 20649104 (Version 1)
Quarter: 2022Q1

REPORT INFORMATION
  Report Type: Spontaneous
  Country: US (occurrence: None)
  Receive Date: 20220328
  Receipt Date: 20220328
  Transmission Date: 20220424
  Serious: Yes (Hospitalization)
  Sender: FDA-Public Use
  Company Number: None

PATIENT
  Age: 34 Year
  Sex: Female

DRUGS (10)
  1. SAIZENPREP [Suspect]
     Active Substance: SOMATROPIN
     Indication: Dwarfism
     Dosage: INJECT 0.6 MG UNDER THE SKIN (SUBCUTANEOUS  INJECTION) 5 DAYS A WEEK AND NONE 2 DAYS A WEEK
     Route: 058
     Dates: start: 20180427
  2. CLIMARA PRO DIS [Concomitant]
  3. COMBIPATCH DIS [Concomitant]
  4. DORZOLAMIDE SOL 2% [Concomitant]
  5. EPINEPHRINE [Concomitant]
     Active Substance: EPINEPHRINE
  6. GNP CLEARLAX POW [Concomitant]
  7. GNP LAXATIVE [Concomitant]
  8. A-HYDROCORT [Concomitant]
     Active Substance: HYDROCORTISONE SODIUM SUCCINATE
  9. SYNTHROID [Concomitant]
     Active Substance: LEVOTHYROXINE SODIUM
  10. TRIAMCINOLON CRE 0.025% [Concomitant]

REACTIONS (1)
  - Palpitations [None]

NARRATIVE: CASE EVENT DATE: 20220209
